FAERS Safety Report 24114626 (Version 1)
Quarter: 2024Q3

REPORT INFORMATION
  Report Type: Spontaneous
  Country: GB (occurrence: GB)
  Receive Date: 20240720
  Receipt Date: 20240720
  Transmission Date: 20241016
  Serious: Yes (Other)
  Sender: TEVA
  Company Number: None

PATIENT
  Age: 71 Year
  Sex: Female
  Weight: 88 kg

DRUGS (4)
  1. HYDROCORTISONE [Suspect]
     Active Substance: HYDROCORTISONE\HYDROCORTISONE ACETATE
     Dosage: BACITRACIN AND HYDROCORTISONE AND NEOMYCIN AND NYSTATIN
     Route: 065
  2. BACITRACIN [Suspect]
     Active Substance: BACITRACIN
     Dosage: BACITRACIN AND HYDROCORTISONE AND NEOMYCIN AND NYSTATIN
     Route: 065
  3. NEOMYCIN [Suspect]
     Active Substance: NEOMYCIN
     Dosage: BACITRACIN AND HYDROCORTISONE AND NEOMYCIN AND NYSTATIN
     Route: 065
  4. NYSTATIN [Suspect]
     Active Substance: NYSTATIN
     Dosage: BACITRACIN AND HYDROCORTISONE AND NEOMYCIN AND NYSTATIN
     Route: 065

REACTIONS (2)
  - Blood pressure increased [Not Recovered/Not Resolved]
  - Erythema [Not Recovered/Not Resolved]

NARRATIVE: CASE EVENT DATE: 20240707
